FAERS Safety Report 10877667 (Version 1)
Quarter: 2015Q1

REPORT INFORMATION
  Report Type: Spontaneous
  Country: US (occurrence: None)
  Receive Date: 20150224
  Receipt Date: 20150224
  Transmission Date: 20150721
  Serious: No
  Sender: FDA-Public Use
  Company Number: None

PATIENT
  Age: 59 Year
  Sex: Female
  Weight: 56.7 kg

DRUGS (5)
  1. AMANTADINE [Concomitant]
     Active Substance: AMANTADINE
  2. PLEGRIDY [Concomitant]
     Active Substance: PEGINTERFERON BETA-1A
  3. BACLOFEN. [Concomitant]
     Active Substance: BACLOFEN
  4. VITAMIN C [Concomitant]
     Active Substance: ASCORBIC ACID
  5. PLEGRIDY [Suspect]
     Active Substance: PEGINTERFERON BETA-1A
     Indication: MULTIPLE SCLEROSIS
     Dosage: 1, EVERY 2 WEEKS, GIVEN INTO/UNDER THE SKIN

REACTIONS (2)
  - Device malfunction [None]
  - Injection site discolouration [None]

NARRATIVE: CASE EVENT DATE: 20150125
